FAERS Safety Report 24981063 (Version 1)
Quarter: 2025Q1

REPORT INFORMATION
  Report Type: Spontaneous
  Country: US (occurrence: US)
  Receive Date: 20250218
  Receipt Date: 20250218
  Transmission Date: 20250409
  Serious: No
  Sender: MERZ
  Company Number: US-MERZ PHARMACEUTICALS, LLC-ACO_170012_2021

PATIENT
  Sex: Male

DRUGS (5)
  1. INBRIJA [Suspect]
     Active Substance: LEVODOPA
     Indication: Parkinson^s disease
     Dates: start: 20210605
  2. INBRIJA [Suspect]
     Active Substance: LEVODOPA
     Indication: On and off phenomenon
     Dates: start: 20210605
  3. RYTARY [Concomitant]
     Active Substance: CARBIDOPA\LEVODOPA
     Indication: Product used for unknown indication
     Dosage: 23.75/95 MG, 3 DOSAGE FORM, QD
     Route: 065
  4. RYTARY [Concomitant]
     Active Substance: CARBIDOPA\LEVODOPA
     Dosage: 36.25/145 MG, 7 DOSAGE FORM, QD
     Route: 065
  5. RASAGILINE [Concomitant]
     Active Substance: RASAGILINE
     Indication: Parkinson^s disease
     Dosage: 1 MILLIGRAM 1PILL 1X/DAY
     Route: 065

REACTIONS (12)
  - Dry mouth [Not Recovered/Not Resolved]
  - Muscular weakness [Not Recovered/Not Resolved]
  - Intentional underdose [Unknown]
  - Device issue [Recovered/Resolved]
  - Incorrect dose administered by device [Not Recovered/Not Resolved]
  - Product residue present [Not Recovered/Not Resolved]
  - Device difficult to use [Recovered/Resolved]
  - Wrong technique in device usage process [Not Recovered/Not Resolved]
  - Wrong schedule [Not Recovered/Not Resolved]
  - Therapy interrupted [Recovered/Resolved]
  - Device delivery system issue [Recovered/Resolved]
  - Productive cough [Recovered/Resolved]
